FAERS Safety Report 7945167-3 (Version None)
Quarter: 2011Q4

REPORT INFORMATION
  Report Type: 
  Country: None (occurrence: None)
  Receive Date: 20111129
  Receipt Date: 20111118
  Transmission Date: 20120403
  Serious: Yes (Death, Hospitalization, Other)
  Sender: FDA-Public Use
  Company Number: US-SANOFI-AVENTIS-2011SA074802

PATIENT
  Age: 82 Year
  Sex: Female

DRUGS (6)
  1. ZOCOR [Concomitant]
     Dates: start: 20100907
  2. LISINOPRIL [Concomitant]
     Dates: start: 20100907
  3. NORVASC [Concomitant]
     Dates: start: 20100924
  4. LOPRESSOR [Concomitant]
     Dates: start: 20100911
  5. PLAVIX [Suspect]
     Indication: ANTIPLATELET THERAPY
     Dates: start: 20100907
  6. ASPIRIN [Concomitant]
     Dates: start: 20100907

REACTIONS (9)
  - CONFUSIONAL STATE [None]
  - HYPOTENSION [None]
  - ECG SIGNS OF MYOCARDIAL ISCHAEMIA [None]
  - CARDIAC ARREST [None]
  - AGITATION [None]
  - MYOCARDIAL ISCHAEMIA [None]
  - ANGINA PECTORIS [None]
  - IN-STENT CORONARY ARTERY RESTENOSIS [None]
  - THROMBOSIS IN DEVICE [None]
